FAERS Safety Report 5782534-0 (Version None)
Quarter: 2008Q2

REPORT INFORMATION
  Report Type: 
  Country: None (occurrence: None)
  Receive Date: 20080623
  Receipt Date: 20080611
  Transmission Date: 20081010
  Serious: Yes (Other)
  Sender: FDA-Public Use
  Company Number: CA-PFIZER INC-2008049358

PATIENT
  Sex: Female

DRUGS (1)
  1. CHANTIX [Suspect]

REACTIONS (8)
  - DYSPHAGIA [None]
  - DYSPNOEA [None]
  - FATIGUE [None]
  - LOCAL SWELLING [None]
  - LYMPHADENOPATHY [None]
  - PHARYNGEAL OEDEMA [None]
  - SLEEP DISORDER [None]
  - STREPTOCOCCAL INFECTION [None]
